FAERS Safety Report 10009121 (Version 2)
Quarter: 2015Q3

REPORT INFORMATION
  Report Type: Spontaneous
  Country: US (occurrence: US)
  Receive Date: 20140313
  Receipt Date: 20150814
  Transmission Date: 20151125
  Serious: No
  Sender: FDA-Public Use
  Company Number: US-GILEAD-2013-0073074

PATIENT
  Age: 50 Year
  Sex: Female

DRUGS (2)
  1. LETAIRIS [Suspect]
     Active Substance: AMBRISENTAN
     Indication: PRODUCT USED FOR UNKNOWN INDICATION
     Dosage: 5 MG, UNK
     Dates: start: 20130224
  2. LETAIRIS [Suspect]
     Active Substance: AMBRISENTAN
     Dosage: 0.5 DF, UNK

REACTIONS (9)
  - Vomiting [Unknown]
  - Oxygen saturation abnormal [Unknown]
  - Headache [Unknown]
  - Insomnia [Unknown]
  - Hypoaesthesia [Unknown]
  - Wrong technique in product usage process [Unknown]
  - Dyspnoea [Unknown]
  - Ocular hyperaemia [Unknown]
  - Palpitations [Unknown]

NARRATIVE: CASE EVENT DATE: 201303
